FAERS Safety Report 5709448-6 (Version None)
Quarter: 2008Q2

REPORT INFORMATION
  Report Type: 
  Country: None (occurrence: None)
  Receive Date: 20080418
  Receipt Date: 20080328
  Transmission Date: 20081010
  Serious: Yes (Hospitalization)
  Sender: FDA-Public Use
  Company Number: US-JNJFOC-20071104428

PATIENT
  Age: 52 Year
  Sex: Female
  Weight: 59.88 kg

DRUGS (6)
  1. ORTHO EVRA [Suspect]
     Indication: CONTRACEPTION
     Route: 062
  2. PREVACID [Concomitant]
  3. LEVAQUIN [Concomitant]
  4. NAPROXEN [Concomitant]
  5. BACLOFEN [Concomitant]
  6. CYPROHEPTADINE HCL [Concomitant]

REACTIONS (1)
  - SUBDURAL HAEMATOMA [None]
